FAERS Safety Report 7904502-2 (Version None)
Quarter: 2011Q4

REPORT INFORMATION
  Report Type: 
  Country: None (occurrence: None)
  Receive Date: 20111109
  Receipt Date: 20111028
  Transmission Date: 20120403
  Serious: Yes (Other)
  Sender: FDA-Public Use
  Company Number: US-BAYER-2011-065771

PATIENT
  Age: 28 Year
  Sex: Female
  Weight: 54.875 kg

DRUGS (14)
  1. LOHIST-D [Concomitant]
  2. DECADRON [Concomitant]
     Route: 048
  3. IODREINE D12 [Concomitant]
     Route: 048
  4. DARVOCET [Concomitant]
  5. ALPRAZOLAM [Concomitant]
     Route: 048
  6. TORADOL [Concomitant]
  7. PSEUDO 6-45 [Concomitant]
     Route: 048
  8. AMOXICILLIN [Concomitant]
     Route: 048
  9. CYMBALTA [Concomitant]
     Route: 048
  10. MEDROL [Concomitant]
     Route: 048
  11. SUDAFED 12 HOUR [Concomitant]
     Indication: ALLERGIC SINUSITIS
     Route: 048
  12. ZITHROMAX [Concomitant]
     Route: 048
  13. YASMIN [Suspect]
     Indication: CONTRACEPTION
     Dosage: UNK
     Dates: start: 20080501, end: 20090101
  14. XANAX [Concomitant]
     Route: 048

REACTIONS (5)
  - FEAR [None]
  - INJURY [None]
  - PAIN [None]
  - CHOLECYSTITIS CHRONIC [None]
  - CHOLELITHIASIS [None]
